FAERS Safety Report 4349691-4 (Version None)
Quarter: 2004Q1

REPORT INFORMATION
  Report Type: 
  Country: None (occurrence: None)
  Receive Date: 20040329
  Receipt Date: 20031219
  Transmission Date: 20041129
  Serious: No
  Sender: FDA-Public Use
  Company Number: USA031255180

PATIENT
  Age: 7 Year
  Sex: Male
  Weight: 30 kg

DRUGS (4)
  1. STRATTERA [Suspect]
     Indication: RETCHING
     Dosage: 10 MG/DAY
     Dates: start: 20031121
  2. PROZAC [Concomitant]
  3. FLUOXETINE HCL [Concomitant]
  4. ABILIFY [Concomitant]

REACTIONS (4)
  - AGITATION [None]
  - ANGER [None]
  - CRYING [None]
  - INSOMNIA [None]
